FAERS Safety Report 14290624 (Version 4)
Quarter: 2018Q1

REPORT INFORMATION
  Report Type: Report from Study
  Country: ES (occurrence: ES)
  Receive Date: 20171215
  Receipt Date: 20180126
  Transmission Date: 20180509
  Serious: Yes (Hospitalization, Other)
  Sender: FDA-Public Use
  Company Number: ES-BAYER-2017-237752

PATIENT
  Age: 42 Year
  Sex: Female

DRUGS (11)
  1. RIVOTRIL [Concomitant]
     Active Substance: CLONAZEPAM
     Dosage: 2 DF, QD
     Dates: start: 20170419
  2. MIRENA [Suspect]
     Active Substance: LEVONORGESTREL
     Indication: METRORRHAGIA
  3. MIRENA [Suspect]
     Active Substance: LEVONORGESTREL
     Indication: MENORRHAGIA
  4. MIRENA [Suspect]
     Active Substance: LEVONORGESTREL
     Indication: CONTRACEPTION
  5. MIRENA [Suspect]
     Active Substance: LEVONORGESTREL
     Indication: METRORRHAGIA
  6. SPIDIFEN [Concomitant]
     Dosage: 1 DF, Q8HR
     Dates: start: 201608
  7. MIRENA [Suspect]
     Active Substance: LEVONORGESTREL
     Indication: CONTRACEPTION
     Dosage: 20 MCG/24HR, CONT
     Route: 015
     Dates: start: 20171002, end: 20171015
  8. MIRENA [Suspect]
     Active Substance: LEVONORGESTREL
     Indication: MENORRHAGIA
  9. ESCITALOPRAM [Concomitant]
     Active Substance: ESCITALOPRAM OXALATE
     Dosage: 1 DF, QD
     Dates: start: 20170419
  10. SUERORAL CASEN [Concomitant]
     Dosage: 1 DF, Q8HR
  11. EFFERALGAN [Concomitant]
     Active Substance: ACETAMINOPHEN
     Dosage: 1 DF, BID
     Dates: start: 20160212

REACTIONS (15)
  - Eosinophilia [Recovered/Resolved]
  - Rash [Recovered/Resolved]
  - Diarrhoea [Unknown]
  - Face oedema [Recovered/Resolved]
  - Vomiting [Unknown]
  - Leukocytosis [None]
  - Foreign body reaction [Recovered/Resolved]
  - Asthenia [Recovered/Resolved]
  - Discomfort [Recovered/Resolved]
  - Condition aggravated [Recovered/Resolved]
  - Urinary tract infection [Recovered/Resolved]
  - Malaise [Recovered/Resolved]
  - Abdominal pain [Recovered/Resolved]
  - Dyspepsia [Recovered/Resolved]
  - Generalised oedema [Recovered/Resolved]

NARRATIVE: CASE EVENT DATE: 201710
